FAERS Safety Report 10314420 (Version 1)
Quarter: 2014Q3

REPORT INFORMATION
  Report Type: Spontaneous
  Country: US (occurrence: None)
  Receive Date: 20140717
  Receipt Date: 20140717
  Transmission Date: 20150326
  Serious: Yes (Death)
  Sender: FDA-Public Use
  Company Number: QSC-2014-0368

PATIENT
  Age: 46 Year
  Sex: Female
  Weight: 75.7 kg

DRUGS (3)
  1. NUCYNTA ( TAPENTADOL HYDROCHLORIDE) [Concomitant]
  2. H.P. ACTHAR [Suspect]
     Active Substance: CORTICOTROPIN
     Indication: RHEUMATOID ARTHRITIS
     Route: 058
     Dates: start: 201401, end: 201405
  3. PREDNISONE. [Concomitant]
     Active Substance: PREDNISONE

REACTIONS (11)
  - Pain in extremity [None]
  - Rash macular [None]
  - Pyrexia [None]
  - Drug ineffective [None]
  - Pharyngeal erythema [None]
  - Hyperhidrosis [None]
  - Death [None]
  - Vomiting [None]
  - Pharyngeal oedema [None]
  - Oropharyngeal pain [None]
  - Lymphadenopathy [None]

NARRATIVE: CASE EVENT DATE: 201405
